FAERS Safety Report 15701290 (Version 3)
Quarter: 2019Q1

REPORT INFORMATION
  Report Type: Report from Study
  Country: US (occurrence: US)
  Receive Date: 20181207
  Receipt Date: 20190102
  Transmission Date: 20190417
  Serious: Yes (Death, Hospitalization)
  Sender: FDA-Public Use
  Company Number: US-ACTELION-A-NJ2018-180525

PATIENT
  Age: 50 Year
  Sex: Female

DRUGS (2)
  1. OPSUMIT [Suspect]
     Active Substance: MACITENTAN
     Indication: PULMONARY ARTERIAL HYPERTENSION
     Dosage: 10 MG, QD
     Route: 048
     Dates: start: 20161212, end: 20181204
  2. REMODULIN [Concomitant]
     Active Substance: TREPROSTINIL
     Dosage: UNK
     Route: 042

REACTIONS (10)
  - Sepsis [Fatal]
  - Renal failure [Unknown]
  - Right ventricular failure [Fatal]
  - Mental status changes [Unknown]
  - Cardiac failure [Unknown]
  - Fluid overload [Unknown]
  - Multiple organ dysfunction syndrome [Fatal]
  - Pneumonia [Fatal]
  - Pulmonary arterial hypertension [Fatal]
  - Azotaemia [Unknown]

NARRATIVE: CASE EVENT DATE: 20180928
